FAERS Safety Report 18807800 (Version 1)
Quarter: 2021Q1

REPORT INFORMATION
  Report Type: Spontaneous
  Country: US (occurrence: US)
  Receive Date: 20210129
  Receipt Date: 20210129
  Transmission Date: 20210419
  Serious: Yes (Death)
  Sender: FDA-Public Use
  Company Number: None

PATIENT
  Sex: Female

DRUGS (3)
  1. BUMETANIDE MDV 2.5MG/10ML WEST?WARD [Suspect]
     Active Substance: BUMETANIDE
     Indication: CARDIAC FAILURE CONGESTIVE
     Dosage: 4 TIMES A WEEK
     Route: 042
     Dates: start: 202011
  2. HEPARIN ++ L/F SYR (SML /SYR) 100UNIT/ML BECTON DICKINSON [Suspect]
     Active Substance: HEPARIN SODIUM
     Indication: CARDIAC FAILURE CONGESTIVE
     Dosage: ?          OTHER DOSE:500 UNITS ; HEPARIN FLUSH?
     Route: 042
     Dates: start: 202011
  3. BUMETANIDE MDV 2.5MG/10ML WEST?WARD [Suspect]
     Active Substance: BUMETANIDE
     Indication: URTICARIA
     Dosage: 4 TIMES A WEEK
     Route: 042
     Dates: start: 202011

REACTIONS (3)
  - Idiopathic urticaria [None]
  - Asthma [None]
  - Cardiac failure congestive [None]
